FAERS Safety Report 4966794-1 (Version None)
Quarter: 2006Q2

REPORT INFORMATION
  Report Type: 
  Country: None (occurrence: None)
  Receive Date: 20060407
  Receipt Date: 20060209
  Transmission Date: 20061013
  Serious: Yes (Hospitalization, Disabling)
  Sender: FDA-Public Use
  Company Number: US-MERCK-0602USA02582

PATIENT
  Age: 9 Year
  Sex: Female
  Weight: 20 kg

DRUGS (1)
  1. VIOXX [Suspect]
     Indication: ARTHRITIS
     Route: 048
     Dates: start: 20011220, end: 20020228

REACTIONS (5)
  - ANXIETY [None]
  - CARDIAC FAILURE [None]
  - EMOTIONAL DISORDER [None]
  - INJURY [None]
  - PULMONARY HYPERTENSION [None]
